FAERS Safety Report 9444863 (Version 1)
Quarter: 2013Q3

REPORT INFORMATION
  Report Type: Spontaneous
  Country: US (occurrence: None)
  Receive Date: 20130802
  Receipt Date: 20130802
  Transmission Date: 20140515
  Serious: Yes (Other)
  Sender: FDA-Public Use
  Company Number: 2013US002052

PATIENT
  Age: 47 Year
  Sex: Male
  Weight: 111 kg

DRUGS (2)
  1. ICLUSIG [Suspect]
     Indication: CHRONIC MYELOID LEUKAEMIA
     Route: 048
     Dates: start: 20130708
  2. NEXIUM (ESOMEPRAZOLE MAGNESIUM) [Concomitant]

REACTIONS (1)
  - Cardiac disorder [None]
